FAERS Safety Report 9612832 (Version 2)
Quarter: 2013Q4

REPORT INFORMATION
  Report Type: Spontaneous
  Country: JP (occurrence: JP)
  Receive Date: 20131010
  Receipt Date: 20131018
  Transmission Date: 20140711
  Serious: Yes (Other)
  Sender: FDA-Public Use
  Company Number: JP-MERCK-1310JPN002970

PATIENT
  Age: 60 Year
  Sex: Female

DRUGS (4)
  1. DEXAMETHASONE [Suspect]
     Indication: NATURAL KILLER-CELL LYMPHOBLASTIC LYMPHOMA
     Route: 048
  2. IDARUBICIN HYDROCHLORIDE [Suspect]
     Route: 042
  3. CYTARABINE [Suspect]
     Route: 042
  4. MITOXANTRONE HYDROCHLORIDE [Suspect]
     Route: 042

REACTIONS (1)
  - Fusarium infection [Recovered/Resolved]
